FAERS Safety Report 14030357 (Version 1)
Quarter: 2017Q4

REPORT INFORMATION
  Report Type: Report from Study
  Country: None (occurrence: US)
  Receive Date: 20171002
  Receipt Date: 20171002
  Transmission Date: 20180321
  Serious: Yes (Hospitalization, Other)
  Sender: FDA-Public Use
  Company Number: US-ABBVIE-17K-163-2112637-00

PATIENT
  Sex: Female
  Weight: 56.3 kg

DRUGS (2)
  1. HUMIRA [Suspect]
     Active Substance: ADALIMUMAB
     Indication: CROHN^S DISEASE
     Route: 058
     Dates: start: 2016, end: 20170713
  2. HUMIRA [Suspect]
     Active Substance: ADALIMUMAB
     Route: 058
     Dates: start: 20170808

REACTIONS (5)
  - Abdominal pain [Recovered/Resolved]
  - Infectious mononucleosis [Recovered/Resolved]
  - Blood iron decreased [Recovered/Resolved]
  - Pharyngitis streptococcal [Recovered/Resolved]
  - Pharyngitis streptococcal [Recovered/Resolved]

NARRATIVE: CASE EVENT DATE: 2016
